FAERS Safety Report 8163209-X (Version None)
Quarter: 2012Q1

REPORT INFORMATION
  Report Type: 
  Country: None (occurrence: None)
  Receive Date: 20120224
  Receipt Date: 20110617
  Transmission Date: 20120608
  Serious: No
  Sender: FDA-Public Use
  Company Number: US-PFIZER INC-K201100745

PATIENT
  Age: 86 Year
  Sex: Female
  Weight: 44.444 kg

DRUGS (1)
  1. FLECTOR [Suspect]
     Indication: ARTHRITIS
     Dosage: 1 PATCH TO EACH KNEE, Q12H
     Route: 061
     Dates: start: 20110601, end: 20110601

REACTIONS (1)
  - APPLICATION SITE DISCOLOURATION [None]
